FAERS Safety Report 17153866 (Version 1)
Quarter: 2019Q4

REPORT INFORMATION
  Report Type: Spontaneous
  Country: US (occurrence: US)
  Receive Date: 20191213
  Receipt Date: 20191213
  Transmission Date: 20200122
  Serious: Yes (Other)
  Sender: FDA-Public Use
  Company Number: US-PFIZER INC-2019536801

PATIENT
  Age: 75 Year
  Sex: Male

DRUGS (5)
  1. TOVIAZ [Suspect]
     Active Substance: FESOTERODINE FUMARATE
     Indication: HYPERTONIC BLADDER
     Dosage: 8 MG, 1X/DAY IN THE MORNING
  2. LASIX [Suspect]
     Active Substance: FUROSEMIDE
     Dosage: UNK, (FIVE DAYS A WEEK)
  3. MYRBETRIQ [Suspect]
     Active Substance: MIRABEGRON
     Dosage: UNK
  4. COREG [Concomitant]
     Active Substance: CARVEDILOL
     Indication: HYPERTENSION
     Dosage: 25 MG, 2X/DAY
  5. SPIRONOLACTONE. [Suspect]
     Active Substance: SPIRONOLACTONE
     Dosage: UNK, (ONE A HALF TABLET FIVE DAYS A WEEK)

REACTIONS (2)
  - Prostate cancer [Recovered/Resolved]
  - Body height decreased [Unknown]
